FAERS Safety Report 7865430-4 (Version None)
Quarter: 2011Q4

REPORT INFORMATION
  Report Type: 
  Country: None (occurrence: None)
  Receive Date: 20111028
  Receipt Date: 20101223
  Transmission Date: 20120403
  Serious: No
  Sender: FDA-Public Use
  Company Number: US-GLAXOSMITHKLINE-A0901424A

PATIENT
  Age: 68 Year
  Sex: Female

DRUGS (11)
  1. ADVAIR DISKUS 100/50 [Suspect]
     Indication: PRODUCT USED FOR UNKNOWN INDICATION
     Dosage: 1PUFF TWICE PER DAY
     Route: 055
     Dates: start: 20090301
  2. COZAAR [Concomitant]
  3. KLONOPIN [Concomitant]
  4. POTASSIUM [Concomitant]
  5. SYNTHROID [Concomitant]
  6. PROVENTIL [Concomitant]
  7. MARY'S MAGIC POTION [Concomitant]
  8. VITAMIN TAB [Concomitant]
  9. HYDROCHLOROTHIAZIDE [Concomitant]
  10. PRAVASTATIN [Concomitant]
  11. WARFARIN SODIUM [Concomitant]

REACTIONS (2)
  - NAUSEA [None]
  - PRODUCT QUALITY ISSUE [None]
